FAERS Safety Report 6328770-6 (Version None)
Quarter: 2009Q3

REPORT INFORMATION
  Report Type: 
  Country: None (occurrence: None)
  Receive Date: 20090826
  Receipt Date: 20090818
  Transmission Date: 20100115
  Serious: Yes (Other)
  Sender: FDA-Public Use
  Company Number: JP-ALLERGAN-0911526US

PATIENT
  Age: 55 Year
  Sex: Male

DRUGS (3)
  1. BOTOX [Suspect]
     Indication: BLEPHAROSPASM
     Dosage: 70 UNITS, SINGLE
     Route: 030
  2. BOTOX [Suspect]
     Indication: OROMANDIBULAR DYSTONIA
     Dosage: 171 UNITS, UNK
  3. BOTOX [Suspect]
     Indication: TORTICOLLIS
     Dosage: 60 UNITS, UNK

REACTIONS (8)
  - DRUG INEFFECTIVE [None]
  - DYSARTHRIA [None]
  - DYSPHAGIA [None]
  - FEEDING DISORDER [None]
  - HEAD DISCOMFORT [None]
  - LAGOPHTHALMOS [None]
  - SPEECH DISORDER [None]
  - TONGUE PARALYSIS [None]
